FAERS Safety Report 12435245 (Version 1)
Quarter: 2016Q2

REPORT INFORMATION
  Report Type: Other
  Country: FR (occurrence: FR)
  Receive Date: 20160603
  Receipt Date: 20160603
  Transmission Date: 20160815
  Serious: Yes (Hospitalization)
  Sender: FDA-Public Use
  Company Number: FR-HQ SPECIALTY-FR-2016INT000326

PATIENT
  Age: 43 Year
  Sex: Female

DRUGS (11)
  1. FLUOXETINE HYDROCHLORIDE. [Suspect]
     Active Substance: FLUOXETINE HYDROCHLORIDE
     Indication: MAJOR DEPRESSION
     Dosage: 30 MG (1.5 DOSAGE FORM, IN MORNING)
     Route: 048
     Dates: start: 201601
  2. PLAQUENIL                          /00072602/ [Suspect]
     Active Substance: HYDROXYCHLOROQUINE DIPHOSPHATE
     Indication: SYSTEMIC LUPUS ERYTHEMATOSUS
     Dosage: 200 MG, 2 IN 1 D
     Route: 048
  3. THERALENE [Suspect]
     Active Substance: TRIMEPRAZINE
     Indication: MAJOR DEPRESSION
     Dosage: 50 GTT DROP (S), AT BEDTIME
     Route: 048
     Dates: start: 201601
  4. ABILIFY [Suspect]
     Active Substance: ARIPIPRAZOLE
     Indication: MAJOR DEPRESSION
     Dosage: 10 MG (1 DOSAGE FORM, EVENING)
     Route: 048
  5. METHOTREXATE SODIUM. [Suspect]
     Active Substance: METHOTREXATE SODIUM
     Indication: SYSTEMIC LUPUS ERYTHEMATOSUS
     Dosage: 2.8571 MG (20 MG, 1 IN 1 W)
     Route: 048
  6. TRANXENE T-TAB [Suspect]
     Active Substance: CLORAZEPATE DIPOTASSIUM
     Indication: MAJOR DEPRESSION
     Dosage: 1 DOSAGE FORM, 4 IN 1 D
     Route: 048
     Dates: start: 201601
  7. LEPTICUR [Suspect]
     Active Substance: TROPATEPINE HYDROCHLORIDE
     Indication: PARKINSONISM
     Dosage: 2 DOSAGE FORM, MORNING
     Route: 048
  8. DAFALGAN CODEINE [Suspect]
     Active Substance: ACETAMINOPHEN\CODEINE PHOSPHATE
     Indication: PAIN
     Dosage: 6  DOSAGE FORM (2 DOSAGE FORM, MORNING, MIDDAY AND EVENING)
     Route: 048
  9. LOXAPAC                            /00401801/ [Suspect]
     Active Substance: LOXAPINE SUCCINATE
     Indication: MAJOR DEPRESSION
     Dosage: 250 GTT DROP (S) (50 GTT DROP (S), 5 IN 1 D)
     Route: 048
     Dates: start: 201601
  10. NOCTAMIDE [Suspect]
     Active Substance: LORMETAZEPAM
     Indication: SLEEP DISORDER
     Dosage: 1 DOSAGE FORM, EVENING
     Route: 048
  11. SPECIAFOLDINE [Concomitant]
     Active Substance: FOLIC ACID
     Indication: SYSTEMIC LUPUS ERYTHEMATOSUS
     Dosage: 4 DOSAGE FORM, ON WEDNESDAYS
     Route: 048

REACTIONS (3)
  - Anterograde amnesia [Recovered/Resolved]
  - Product use issue [Unknown]
  - Confusional state [Recovered/Resolved]

NARRATIVE: CASE EVENT DATE: 201603
